FAERS Safety Report 13361636 (Version 1)
Quarter: 2017Q1

REPORT INFORMATION
  Report Type: Spontaneous
  Country: PL (occurrence: PL)
  Receive Date: 20170323
  Receipt Date: 20170323
  Transmission Date: 20170429
  Serious: Yes (Other)
  Sender: FDA-Public Use
  Company Number: PL-BION-006115

PATIENT
  Age: 30 Year
  Sex: Female

DRUGS (1)
  1. IBUPROFEN UNKNOWN PRODUCT [Suspect]
     Active Substance: IBUPROFEN
     Indication: PRODUCT USED FOR UNKNOWN INDICATION
     Dosage: HIGH DOSE OF NSAID

REACTIONS (3)
  - Labelled drug-food interaction medication error [Unknown]
  - Anaphylactic reaction [Unknown]
  - Overdose [Not Recovered/Not Resolved]
